FAERS Safety Report 19283632 (Version 1)
Quarter: 2021Q2

REPORT INFORMATION
  Report Type: Spontaneous
  Country: JP (occurrence: JP)
  Receive Date: 20210520
  Receipt Date: 20210520
  Transmission Date: 20210717
  Serious: Yes (Other)
  Sender: FDA-Public Use
  Company Number: JP-SA-2021SA165256

PATIENT
  Sex: Male

DRUGS (2)
  1. DUPIXENT [Suspect]
     Active Substance: DUPILUMAB
     Indication: PRODUCT USED FOR UNKNOWN INDICATION
     Dosage: 300 MG, QOW
     Route: 058
     Dates: start: 201909, end: 202010
  2. DUPIXENT [Suspect]
     Active Substance: DUPILUMAB
     Dosage: 300 MG, QM
     Route: 058
     Dates: start: 202010, end: 202102

REACTIONS (8)
  - Red blood cell count decreased [Unknown]
  - Inappropriate schedule of product administration [Unknown]
  - Gastric cancer [Unknown]
  - Metastases to abdominal cavity [Unknown]
  - White blood cell count decreased [Unknown]
  - Conjunctivitis allergic [Unknown]
  - Oesophageal carcinoma [Unknown]
  - Herpes simplex [Unknown]

NARRATIVE: CASE EVENT DATE: 202010
